FAERS Safety Report 7864806-9 (Version None)
Quarter: 2011Q4

REPORT INFORMATION
  Report Type: 
  Country: None (occurrence: None)
  Receive Date: 20111028
  Receipt Date: 20101215
  Transmission Date: 20120403
  Serious: No
  Sender: FDA-Public Use
  Company Number: US-GLAXOSMITHKLINE-A0850682A

PATIENT
  Age: 59 Year
  Sex: Female

DRUGS (6)
  1. CELEBREX [Concomitant]
  2. ALLEGRA [Concomitant]
  3. CRESTOR [Concomitant]
  4. TRIAMTERENE AND HYDROCHLOROTHIAZIDE [Concomitant]
  5. ADVAIR DISKUS 100/50 [Suspect]
     Indication: ASTHMA
     Dosage: 1PUFF TWICE PER DAY
     Route: 055
     Dates: start: 20010101
  6. FLONASE [Concomitant]

REACTIONS (4)
  - BLOOD PRESSURE INCREASED [None]
  - ANXIETY [None]
  - HEART RATE INCREASED [None]
  - PRODUCT QUALITY ISSUE [None]
